FAERS Safety Report 19120327 (Version 2)
Quarter: 2021Q2

REPORT INFORMATION
  Report Type: Spontaneous
  Country: BR (occurrence: BR)
  Receive Date: 20210412
  Receipt Date: 20210423
  Transmission Date: 20210717
  Serious: Yes (Other)
  Sender: FDA-Public Use
  Company Number: BR-CELLTRION INC.-2021BR004209

PATIENT

DRUGS (10)
  1. OXALIPLATINA [Concomitant]
     Active Substance: OXALIPLATIN
     Dosage: 253 MG
     Route: 042
     Dates: start: 20210302
  2. SODIUM CHLORIDE. [Concomitant]
     Active Substance: SODIUM CHLORIDE
  3. ACETAMINOPHEN. [Concomitant]
     Active Substance: ACETAMINOPHEN
  4. GRANISETRONE [Concomitant]
  5. CITARABIN [Concomitant]
     Active Substance: CYTARABINE
     Dosage: UNK (ENDOVENOUS)
     Route: 042
     Dates: start: 20210302
  6. DIFENIDRAMINA [Concomitant]
     Active Substance: DIPHENHYDRAMINE
  7. DEXAMETHASONE. [Concomitant]
     Active Substance: DEXAMETHASONE
  8. TRUXIMA [Suspect]
     Active Substance: RITUXIMAB-ABBS
     Indication: MANTLE CELL LYMPHOMA
     Dosage: 700 MG ONCE PER DAY AT 4:00 PM, 1 CYCLE EVERY 21 DAYS
     Route: 042
     Dates: start: 20210302
  9. TRUXIMA [Suspect]
     Active Substance: RITUXIMAB-ABBS
     Dosage: 730 MG ONCE PER DAY AT 4:00 PM, 1 CYCLE EVERY 21 DAYS
     Route: 042
     Dates: start: 20210323
  10. PARACETAMOL [Concomitant]
     Active Substance: ACETAMINOPHEN

REACTIONS (4)
  - Off label use [Unknown]
  - Hypoxia [Recovered/Resolved]
  - Pruritus [Recovered/Resolved]
  - Cough [Recovered/Resolved]

NARRATIVE: CASE EVENT DATE: 20210302
